FAERS Safety Report 5446997-2 (Version None)
Quarter: 2007Q3

REPORT INFORMATION
  Report Type: 
  Country: None (occurrence: None)
  Receive Date: 20070810
  Receipt Date: 20070131
  Transmission Date: 20080115
  Serious: Yes (Other)
  Sender: FDA-Public Use
  Company Number: A03200700884

PATIENT
  Age: 53 Year
  Sex: Male
  Weight: 97.5234 kg

DRUGS (1)
  1. UROXATRAL [Suspect]
     Indication: PROSTATE EXAMINATION ABNORMAL
     Dosage: 10 MG QD-ORAL
     Route: 048
     Dates: start: 20070117, end: 20070118

REACTIONS (5)
  - BLOOD PRESSURE DECREASED [None]
  - DIZZINESS [None]
  - LOSS OF CONSCIOUSNESS [None]
  - MALAISE [None]
  - PALLOR [None]
